FAERS Safety Report 7929640 (Version 4)
Quarter: 2013Q2

REPORT INFORMATION
  Report Type: Spontaneous
  Country: IE (occurrence: None)
  Receive Date: 20110413
  Receipt Date: 20130620
  Transmission Date: 20140414
  Serious: Yes (Death, Hospitalization, Other)
  Sender: FDA-Public Use
  Company Number: IE-022334

PATIENT
  Age: 71 Year
  Sex: Male
  Weight: 78.1 kg

DRUGS (1)
  1. CHLORAMBUCIL [Suspect]
     Indication: CHRONIC LYMPHOCYTIC LEUKAEMIA
     Dosage: AT DAYS 1-7 EVERY 28 DAYS (10 MG/M2,1 IN 1 DAYS),ORAL
     Route: 048
     Dates: start: 20110303

REACTIONS (11)
  - MONOCYTE COUNT DECREASED [None]
  - PLATELET COUNT DECREASED [None]
  - RED BLOOD CELL COUNT DECREASED [None]
  - WHITE BLOOD CELL COUNT DECREASED [None]
  - COUGH [None]
  - RESPIRATORY TRACT INFECTION [None]
  - CHRONIC LYMPHOCYTIC LEUKAEMIA [None]
  - Neoplasm progression [None]
  - FEBRILE NEUTROPENIA [None]
  - PANCYTOPENIA [None]
  - HAEMOGLOBIN DECREASED [None]
